FAERS Safety Report 21561237 (Version 1)
Quarter: 2022Q4

REPORT INFORMATION
  Report Type: Spontaneous
  Country: US (occurrence: US)
  Receive Date: 20221107
  Receipt Date: 20221107
  Transmission Date: 20230112
  Serious: Yes (Death, Other)
  Sender: FDA-Public Use
  Company Number: US-AMGEN-USASP2022186688

PATIENT
  Age: 53 Year
  Sex: Male

DRUGS (1)
  1. RITUXIMAB [Suspect]
     Active Substance: RITUXIMAB
     Indication: Motor neurone disease
     Dosage: UNK, Q6MO
     Route: 065

REACTIONS (3)
  - Cardiac arrest [Fatal]
  - Drug ineffective for unapproved indication [Unknown]
  - Off label use [Unknown]
